FAERS Safety Report 7913773-8 (Version None)
Quarter: 2011Q4

REPORT INFORMATION
  Report Type: 
  Country: None (occurrence: None)
  Receive Date: 20111115
  Receipt Date: 20111108
  Transmission Date: 20120403
  Serious: Yes (Other)
  Sender: FDA-Public Use
  Company Number: CA-JNJFOC-20111100980

PATIENT
  Sex: Male
  Weight: 109 kg

DRUGS (1)
  1. REMICADE [Suspect]
     Indication: CROHN'S DISEASE
     Route: 042
     Dates: start: 20101201

REACTIONS (3)
  - WEIGHT INCREASED [None]
  - HYPOACUSIS [None]
  - SKIN LESION [None]
